FAERS Safety Report 22167330 (Version 3)
Quarter: 2024Q2

REPORT INFORMATION
  Report Type: Spontaneous
  Country: US (occurrence: US)
  Receive Date: 20230403
  Receipt Date: 20240417
  Transmission Date: 20240716
  Serious: No
  Sender: FDA-Public Use
  Company Number: US-PFIZER INC-PV202200100831

PATIENT
  Age: 74 Year
  Sex: Female

DRUGS (1)
  1. XELJANZ XR [Suspect]
     Active Substance: TOFACITINIB CITRATE
     Dosage: 1 DF, DAILY
     Route: 048

REACTIONS (4)
  - Confusional state [Unknown]
  - Drug hypersensitivity [Unknown]
  - Cough [Not Recovered/Not Resolved]
  - Product prescribing error [Unknown]
